FAERS Safety Report 23545464 (Version 4)
Quarter: 2024Q1

REPORT INFORMATION
  Report Type: Spontaneous
  Country: IN (occurrence: IN)
  Receive Date: 20240220
  Receipt Date: 20240228
  Transmission Date: 20240410
  Serious: Yes (Hospitalization)
  Sender: FDA-Public Use
  Company Number: IN-PFIZER INC-PV202400023088

PATIENT
  Age: 31 Year
  Sex: Female

DRUGS (3)
  1. LORLATINIB [Suspect]
     Active Substance: LORLATINIB
     Dosage: 100 MG
     Route: 048
     Dates: start: 20231117
  2. LORLATINIB [Suspect]
     Active Substance: LORLATINIB
     Dosage: 25 MG
     Route: 048
     Dates: start: 20231117
  3. LORLATINIB [Suspect]
     Active Substance: LORLATINIB
     Dosage: 100 MG, 1X/DAY
     Route: 048

REACTIONS (11)
  - Malaise [Unknown]
  - Dyspnoea [Unknown]
  - Diarrhoea [Unknown]
  - Pyrexia [Unknown]
  - Neoplasm progression [Unknown]
  - Thinking abnormal [Unknown]
  - Self-consciousness [Unknown]
  - Nausea [Unknown]
  - Mental disorder [Unknown]
  - Asthenia [Unknown]
  - Pain [Unknown]
